FAERS Safety Report 15652277 (Version 1)
Quarter: 2018Q4

REPORT INFORMATION
  Report Type: Spontaneous
  Country: US (occurrence: US)
  Receive Date: 20181122
  Receipt Date: 20181122
  Transmission Date: 20190205
  Serious: Yes (Disabling, Other)
  Sender: FDA-Public Use
  Company Number: None

PATIENT
  Age: 53 Year
  Sex: Female
  Weight: 72.9 kg

DRUGS (11)
  1. PAXIL CR [Concomitant]
     Active Substance: PAROXETINE HYDROCHLORIDE
  2. LEVOTHYROXIN [Concomitant]
     Active Substance: LEVOTHYROXINE
  3. AIMOVIG [Suspect]
     Active Substance: ERENUMAB-AOOE
     Indication: MIGRAINE
     Dosage: ?          QUANTITY:1 INJECTION(S);OTHER FREQUENCY:1 PER MONTH;?
     Route: 058
     Dates: start: 20180926, end: 20181027
  4. GABOPENTIN [Concomitant]
  5. CLONAZAPAM [Concomitant]
     Active Substance: CLONAZEPAM
  6. ALEVE [Concomitant]
     Active Substance: NAPROXEN SODIUM
  7. LUNESTA [Concomitant]
     Active Substance: ESZOPICLONE
  8. BREO ELLIPTA [Concomitant]
     Active Substance: FLUTICASONE FUROATE\VILANTEROL TRIFENATATE
  9. ALLEGRA [Concomitant]
     Active Substance: FEXOFENADINE HYDROCHLORIDE
  10. CLONAZAPAM [Concomitant]
     Active Substance: CLONAZEPAM
  11. ALIVE FOR WOMEN MULTIVITAMIN [Concomitant]

REACTIONS (14)
  - Pain of skin [None]
  - Nasal congestion [None]
  - Pruritus [None]
  - Labyrinthitis [None]
  - Bone pain [None]
  - Panic attack [None]
  - Depression [None]
  - Arthralgia [None]
  - Respiratory disorder [None]
  - Anxiety [None]
  - Migraine [None]
  - Fatigue [None]
  - Weight increased [None]
  - Insomnia [None]

NARRATIVE: CASE EVENT DATE: 20180927
